FAERS Safety Report 21371472 (Version 1)
Quarter: 2022Q3

REPORT INFORMATION
  Report Type: Spontaneous
  Country: DE (occurrence: DE)
  Receive Date: 20220923
  Receipt Date: 20220923
  Transmission Date: 20221027
  Serious: Yes (Hospitalization)
  Sender: FDA-Public Use
  Company Number: DE-NOVARTISPH-NVSC2022DE212082

PATIENT
  Age: 81 Year
  Sex: Male

DRUGS (7)
  1. ASPIRIN [Suspect]
     Active Substance: ASPIRIN
     Indication: Product used for unknown indication
     Dosage: 100 MG, 1-0-0-0
     Route: 065
  2. CANDESARTAN [Concomitant]
     Active Substance: CANDESARTAN
     Indication: Product used for unknown indication
     Dosage: 32 MG, 0-0-1-0
     Route: 065
  3. ALFUZOSIN [Concomitant]
     Active Substance: ALFUZOSIN
     Indication: Product used for unknown indication
     Dosage: 10 MG, 0-0-1-0
     Route: 065
  4. METFORMIN [Concomitant]
     Active Substance: METFORMIN HYDROCHLORIDE
     Indication: Product used for unknown indication
     Dosage: 1000 MG, 1-0-1-0
     Route: 065
  5. LISINOPRIL [Concomitant]
     Active Substance: LISINOPRIL
     Indication: Product used for unknown indication
     Dosage: 20 MG, 1-0-0-0
     Route: 065
  6. ALLOPURINOL [Concomitant]
     Active Substance: ALLOPURINOL
     Indication: Product used for unknown indication
     Dosage: 150 MG, 0-0-1-0
     Route: 065
  7. LERCANIDIPINE [Concomitant]
     Active Substance: LERCANIDIPINE
     Indication: Product used for unknown indication
     Dosage: 20 MG, 1-0-0-0
     Route: 065

REACTIONS (11)
  - Dyspnoea [Unknown]
  - Fall [Unknown]
  - Tachycardia [Unknown]
  - Systemic infection [Unknown]
  - Periorbital haematoma [Unknown]
  - Tachypnoea [Unknown]
  - Anaemia [Unknown]
  - Atrial fibrillation [Unknown]
  - Sepsis [Unknown]
  - Renal impairment [Unknown]
  - General physical health deterioration [Unknown]
